FAERS Safety Report 16255133 (Version 1)
Quarter: 2019Q2

REPORT INFORMATION
  Report Type: Spontaneous
  Country: US (occurrence: US)
  Receive Date: 20190430
  Receipt Date: 20190430
  Transmission Date: 20190711
  Serious: Yes (Other)
  Sender: FDA-Public Use
  Company Number: US-TEVA-2019-US-1043695

PATIENT
  Age: 54 Year
  Sex: Male

DRUGS (3)
  1. CISPLATIN. [Suspect]
     Active Substance: CISPLATIN
     Indication: KERATINISING SQUAMOUS CELL CARCINOMA OF NASOPHARYNX
     Dosage: 5.7143 MG/M2 DAILY; 9 WEEKLY DOSAGES
     Route: 065
  2. CISPLATIN. [Suspect]
     Active Substance: CISPLATIN
     Dosage: 2 CYCLES ON DAYS 1 AND 8; CUMULATIVE DOSE WAS 520 MG/M2
     Route: 065
  3. FLUOROURACIL. [Concomitant]
     Active Substance: FLUOROURACIL
     Indication: KERATINISING SQUAMOUS CELL CARCINOMA OF NASOPHARYNX
     Dosage: 47.619 MG/M2 DAILY; D-1 FOR 120 HOURS EVERY 3 WEEKS
     Route: 065

REACTIONS (4)
  - Toxicity to various agents [Unknown]
  - Peripheral sensory neuropathy [Unknown]
  - Gait disturbance [Unknown]
  - Lhermitte^s sign [Recovered/Resolved]
